FAERS Safety Report 23849224 (Version 1)
Quarter: 2024Q2

REPORT INFORMATION
  Report Type: Spontaneous
  Country: FR (occurrence: FR)
  Receive Date: 20240513
  Receipt Date: 20240513
  Transmission Date: 20240716
  Serious: Yes (Hospitalization)
  Sender: FDA-Public Use
  Company Number: None

PATIENT
  Age: 32 Year
  Sex: Male

DRUGS (8)
  1. PROPOFOL [Suspect]
     Active Substance: PROPOFOL
     Indication: Anaesthesia
     Dosage: ROUTE OF ADMIN: INTRAVENOUS (NOT OTHERWISE SPECIFIED)
     Dates: start: 20220610, end: 20220610
  2. KETAMINE [Suspect]
     Active Substance: KETAMINE
     Indication: Anaesthesia
     Dosage: ROUTE: INTRAVENOUS
     Dates: start: 20220610, end: 20220610
  3. BETADINE [Suspect]
     Active Substance: POVIDONE-IODINE
     Indication: Infection prophylaxis
     Dosage: ROUTE: CTANEOUS
     Dates: start: 20220610, end: 20220610
  4. SUFENTANIL [Suspect]
     Active Substance: SUFENTANIL
     Indication: Anaesthesia
     Dosage: ROUTE: INTRAVENOUS
     Dates: start: 20220610, end: 20220610
  5. KETOPROFEN [Suspect]
     Active Substance: KETOPROFEN
     Indication: Pain prophylaxis
     Dosage: ROUTE: INTRAVENOUS
     Dates: start: 20220610, end: 20220610
  6. CEFAZOLIN SODIUM [Suspect]
     Active Substance: CEFAZOLIN SODIUM
     Indication: Antibiotic prophylaxis
     Dosage: ROUTE: INTRAVENOUS
     Dates: start: 20220610, end: 20220610
  7. ACETAMINOPHEN [Concomitant]
     Active Substance: ACETAMINOPHEN
     Indication: Product used for unknown indication
  8. MIVACRON [Concomitant]
     Active Substance: MIVACURIUM CHLORIDE
     Indication: Product used for unknown indication

REACTIONS (1)
  - Anaphylactic reaction [Recovered/Resolved]

NARRATIVE: CASE EVENT DATE: 20220610
